FAERS Safety Report 8032494-7 (Version None)
Quarter: 2011Q4

REPORT INFORMATION
  Report Type: 
  Country: None (occurrence: None)
  Receive Date: 20111223
  Receipt Date: 20111214
  Transmission Date: 20120403
  Serious: Yes (Hospitalization, Disabling, Other)
  Sender: FDA-Public Use
  Company Number: 2011MA017705

PATIENT
  Sex: Male

DRUGS (15)
  1. MILK OF MAGNESIA TAB [Concomitant]
  2. DIGOXIN [Suspect]
     Indication: PRODUCT USED FOR UNKNOWN INDICATION
     Dosage: 0.25 MG;QD;PO
     Route: 048
     Dates: start: 20070117, end: 20081031
  3. APAP TAB [Concomitant]
  4. VISTARIL [Concomitant]
  5. ABILIFY [Concomitant]
  6. ATIVAN [Concomitant]
  7. LISINOPRIL [Concomitant]
  8. HALDOL [Concomitant]
  9. MYLANTA [Concomitant]
  10. LASIX [Concomitant]
  11. PRILOSEC [Concomitant]
  12. CRESTOR [Concomitant]
  13. POTASSIUM CHLORIDE [Concomitant]
  14. NEXIUM [Concomitant]
  15. TRILEPTAL [Concomitant]

REACTIONS (36)
  - FEAR [None]
  - AGITATION [None]
  - DISTURBANCE IN ATTENTION [None]
  - PSYCHIATRIC EVALUATION ABNORMAL [None]
  - TREATMENT NONCOMPLIANCE [None]
  - MEMORY IMPAIRMENT [None]
  - OBESITY [None]
  - SOMNOLENCE [None]
  - HALLUCINATIONS, MIXED [None]
  - ELECTROCARDIOGRAM ST SEGMENT DEPRESSION [None]
  - JUDGEMENT IMPAIRED [None]
  - UNEVALUABLE EVENT [None]
  - DELUSION [None]
  - DISORIENTATION [None]
  - BLOOD TRIGLYCERIDES INCREASED [None]
  - SOCIAL PROBLEM [None]
  - SCHIZOAFFECTIVE DISORDER [None]
  - MENTAL DISORDER [None]
  - SUICIDAL IDEATION [None]
  - BIPOLAR DISORDER [None]
  - NEGLECT OF PERSONAL APPEARANCE [None]
  - ACTIVITIES OF DAILY LIVING IMPAIRED [None]
  - CONFUSIONAL STATE [None]
  - GASTROOESOPHAGEAL REFLUX DISEASE [None]
  - HYPERTENSION [None]
  - FLIGHT OF IDEAS [None]
  - COGNITIVE DISORDER [None]
  - PARANOIA [None]
  - CARDIAC FAILURE CONGESTIVE [None]
  - WHEEZING [None]
  - MINI MENTAL STATUS EXAMINATION ABNORMAL [None]
  - LOOSE ASSOCIATIONS [None]
  - DEPRESSION [None]
  - ABNORMAL BEHAVIOUR [None]
  - DISSOCIATION [None]
  - BLOOD PRESSURE INCREASED [None]
